FAERS Safety Report 5971819-0 (Version None)
Quarter: 2008Q4

REPORT INFORMATION
  Report Type: 
  Country: None (occurrence: None)
  Receive Date: 20081201
  Receipt Date: 20081117
  Transmission Date: 20090506
  Serious: Yes (Other)
  Sender: FDA-Public Use
  Company Number: JP-PURDUE-MAG_2008_0000699

PATIENT
  Age: 42 Year
  Sex: Female
  Weight: 45 kg

DRUGS (2)
  1. ZOLPIDEM TARTRATE [Concomitant]
     Indication: SUICIDE ATTEMPT
     Dosage: 60 MG, SINGLE
     Route: 048
     Dates: start: 20080527, end: 20080527
  2. THEOPHYLLINE [Suspect]
     Indication: DRUG USE FOR UNKNOWN INDICATION
     Dosage: 2000 MG, SINGLE
     Route: 048
     Dates: start: 20080527, end: 20080527

REACTIONS (6)
  - BLOOD PRESSURE DECREASED [None]
  - CONVULSION [None]
  - INTENTIONAL OVERDOSE [None]
  - RENAL FAILURE ACUTE [None]
  - RESPIRATORY FAILURE [None]
  - RHABDOMYOLYSIS [None]
